FAERS Safety Report 10143827 (Version 7)
Quarter: 2015Q3

REPORT INFORMATION
  Report Type: Report from Study
  Country: IN (occurrence: IN)
  Receive Date: 20140430
  Receipt Date: 20150717
  Transmission Date: 20151125
  Serious: Yes (Other)
  Sender: FDA-Public Use
  Company Number: IN-GLAXOSMITHKLINE-Z0022567A

PATIENT
  Age: 33 Year
  Sex: Female
  Weight: 53 kg

DRUGS (10)
  1. LETROZOLE. [Suspect]
     Active Substance: LETROZOLE
     Indication: BREAST CANCER METASTATIC
     Dosage: 2.5 MG, QD
     Route: 048
     Dates: start: 20130218
  2. CARDACE [Concomitant]
     Active Substance: RAMIPRIL
     Indication: CARDIAC DISORDER
     Dosage: 1.25 MG, QD
     Route: 048
     Dates: start: 20130620
  3. TYKERB [Suspect]
     Active Substance: LAPATINIB DITOSYLATE
     Indication: BREAST CANCER METASTATIC
     Dosage: 1000 MG, QD
     Route: 048
     Dates: start: 20130218
  4. PANTOCID [Concomitant]
     Indication: PROPHYLAXIS
     Dosage: 40 MG, BID
     Route: 048
     Dates: start: 20130218
  5. METOLAR XR [Concomitant]
     Indication: CARDIAC DISORDER
     Dosage: 12.5 MG, QD
     Route: 048
     Dates: start: 20130620
  6. OSTEO CALCIUM [Concomitant]
     Indication: CALCIUM DEFICIENCY
     Dosage: 1000 MG, QD
     Route: 048
     Dates: start: 20100101
  7. FOLVITE [Concomitant]
     Active Substance: FOLIC ACID
     Indication: VITAMIN SUPPLEMENTATION
     Dosage: 5 MG, SINGLE
     Route: 048
     Dates: start: 20130218
  8. PROCTOSEDYL [Concomitant]
     Active Substance: DIBUCAINE HYDROCHLORIDE\HYDROCORTISONE
     Indication: RASH
     Dosage: 1 APPLICATION(S), QD
     Route: 061
     Dates: start: 20130401
  9. TRASTUZUMAB [Suspect]
     Active Substance: TRASTUZUMAB
     Indication: BREAST CANCER METASTATIC
     Dosage: UNK UNK, CYC
     Route: 042
     Dates: start: 20130218
  10. COBADEX FORTE [Concomitant]
     Indication: HYPOVITAMINOSIS
     Dosage: 1 DF, QD
     Route: 048
     Dates: start: 20130218

REACTIONS (1)
  - Cardiac disorder [Recovered/Resolved]

NARRATIVE: CASE EVENT DATE: 20140424
